FAERS Safety Report 6664632-2 (Version None)
Quarter: 2010Q2

REPORT INFORMATION
  Report Type: 
  Country: None (occurrence: None)
  Receive Date: 20100401
  Receipt Date: 20090626
  Transmission Date: 20101027
  Serious: Yes (Other)
  Sender: FDA-Public Use
  Company Number: PHHY2009TW60893

PATIENT
  Sex: Female

DRUGS (1)
  1. GLEEVEC [Suspect]
     Indication: GASTROINTESTINAL STROMAL TUMOUR
     Dosage: 400 (UNITS UNKNOWN)

REACTIONS (6)
  - DEPRESSION [None]
  - DRUG EXPOSURE DURING PREGNANCY [None]
  - LOCAL SWELLING [None]
  - MENORRHAGIA [None]
  - POOR QUALITY SLEEP [None]
  - UTERINE DILATION AND CURETTAGE [None]
